FAERS Safety Report 9929111 (Version 1)
Quarter: 2014Q1

REPORT INFORMATION
  Report Type: Spontaneous
  Country: DE (occurrence: DE)
  Receive Date: 20140227
  Receipt Date: 20140227
  Transmission Date: 20141002
  Serious: Yes (Congenital Anomaly, Other)
  Sender: FDA-Public Use
  Company Number: DE-PFIZER INC-2014050404

PATIENT
  Age: 1 Day
  Sex: Male
  Weight: 2.08 kg

DRUGS (5)
  1. SERTRALINE HCL [Suspect]
     Indication: DEPRESSION
     Dosage: 100 MG, ONCE A DAY (GESTATIONAL WEEK 0. - 34.5 )
     Route: 064
     Dates: start: 20120407, end: 20121206
  2. LAMOTRIGINE [Suspect]
     Indication: BIPOLAR DISORDER
     Dosage: UNK
     Route: 064
     Dates: start: 20120407
  3. LAMOTRIGINE [Suspect]
     Dosage: HIGHER DOSE OF 200MG/D SINCE GW 15
     Route: 064
     Dates: end: 20121206
  4. L-THYROXIN HENNING [Concomitant]
     Indication: AUTOIMMUNE THYROIDITIS
     Dosage: 75 UG, ONCE A DAY (0. - 34.5 GESTATIONAL WEEK)
     Route: 064
     Dates: start: 20120407, end: 20121206
  5. CORDES BPO [Concomitant]
     Indication: ACNE
     Dosage: UNK, 0 - 5.6 GESTATIONAL WEEK
     Route: 064
     Dates: start: 20120407, end: 20120518

REACTIONS (3)
  - Maternal exposure during pregnancy [Recovered/Resolved]
  - Polydactyly [Recovered/Resolved]
  - Premature baby [Unknown]
